FAERS Safety Report 7308406-8 (Version None)
Quarter: 2011Q1

REPORT INFORMATION
  Report Type: 
  Country: None (occurrence: None)
  Receive Date: 20110211
  Receipt Date: 20110127
  Transmission Date: 20110831
  Serious: Yes (Hospitalization)
  Sender: FDA-Public Use
  Company Number: 026757

PATIENT
  Sex: Male

DRUGS (4)
  1. KEPPRA [Suspect]
  2. LAMICTIN (LAMICTIN) [Suspect]
     Indication: EPILEPSY
     Dosage: (25 MG BID ORAL) ; (50 MG BID ORAL) ; (200 MG BID ORAL)
     Route: 048
  3. EPANUTIN /00017402/ (EPANUTIN) (NOT SPECIFIED) [Suspect]
  4. RIVOTRIL [Concomitant]

REACTIONS (7)
  - TRANSMISSION OF AN INFECTIOUS AGENT VIA A MEDICINAL PRODUCT [None]
  - STATUS EPILEPTICUS [None]
  - DRUG INEFFECTIVE [None]
  - CATATONIA [None]
  - DYSPHAGIA [None]
  - STARING [None]
  - HEMIPLEGIA [None]
